FAERS Safety Report 7699329-3 (Version None)
Quarter: 2011Q3

REPORT INFORMATION
  Report Type: 
  Country: None (occurrence: None)
  Receive Date: 20110819
  Receipt Date: 20110811
  Transmission Date: 20111222
  Serious: Yes (Other)
  Sender: FDA-Public Use
  Company Number: US-BAYER-2011-050894

PATIENT
  Age: 32 Year
  Sex: Female
  Weight: 69.388 kg

DRUGS (7)
  1. DROSPIRENONE AND ETHINYL ESTRADIOL [Suspect]
     Indication: CONTRACEPTION
     Dosage: UNK
     Dates: start: 20080101, end: 20100801
  2. ZOLPIDEM [Concomitant]
     Dosage: 10 MG, UNK
  3. YASMIN [Suspect]
     Indication: CONTRACEPTION
     Dosage: UNK
     Dates: start: 20060310, end: 20080101
  4. NULYTELY [Concomitant]
  5. NEXIUM [Concomitant]
     Indication: GASTROOESOPHAGEAL REFLUX DISEASE
     Dosage: UNK
     Dates: start: 20090101
  6. CHANTIX [Concomitant]
  7. EFFEXOR [Concomitant]
     Indication: DEPRESSION
     Dosage: UNK
     Dates: start: 20080101, end: 20090101

REACTIONS (8)
  - CHOLECYSTITIS CHRONIC [None]
  - INJURY [None]
  - BACK PAIN [None]
  - GASTROOESOPHAGEAL REFLUX DISEASE [None]
  - LOSS OF LIBIDO [None]
  - WEIGHT INCREASED [None]
  - BILIARY DYSKINESIA [None]
  - GALLBLADDER DISORDER [None]
